FAERS Safety Report 7913215-2 (Version None)
Quarter: 2011Q4

REPORT INFORMATION
  Report Type: 
  Country: None (occurrence: None)
  Receive Date: 20111114
  Receipt Date: 20111104
  Transmission Date: 20120403
  Serious: Yes (Other)
  Sender: FDA-Public Use
  Company Number: US-ASTRAZENECA-2011SE67406

PATIENT
  Sex: Female

DRUGS (2)
  1. LIPITOR [Concomitant]
  2. CRESTOR [Suspect]
     Route: 048

REACTIONS (3)
  - BLOOD CHOLESTEROL DECREASED [None]
  - COLORECTAL CANCER [None]
  - CEREBROVASCULAR ACCIDENT [None]
